FAERS Safety Report 7035437-8 (Version None)
Quarter: 2010Q4

REPORT INFORMATION
  Report Type: 
  Country: None (occurrence: None)
  Receive Date: 20101008
  Receipt Date: 20100927
  Transmission Date: 20110411
  Serious: Yes (Other)
  Sender: FDA-Public Use
  Company Number: IT-PFIZER INC-2010122294

PATIENT
  Age: 50 Year
  Sex: Male

DRUGS (3)
  1. LYRICA [Suspect]
     Indication: NEURALGIA
     Dosage: 75 MG, DAILY
     Dates: start: 20100921
  2. PARIET [Concomitant]
     Dosage: UNK
  3. THIOCOLCHICOSIDE [Concomitant]
     Dosage: UNK

REACTIONS (3)
  - NEURALGIA [None]
  - PAIN IN EXTREMITY [None]
  - RASH MACULAR [None]
